FAERS Safety Report 9981384 (Version 1)
Quarter: 2014Q1

REPORT INFORMATION
  Report Type: Spontaneous
  Country: CA (occurrence: CA)
  Receive Date: 20140307
  Receipt Date: 20140307
  Transmission Date: 20141002
  Serious: Yes (Other)
  Sender: FDA-Public Use
  Company Number: CA-ASTRAZENECA-2014SE14591

PATIENT
  Sex: Female

DRUGS (3)
  1. FASLODEX [Suspect]
     Indication: BREAST CANCER FEMALE
     Route: 030
     Dates: start: 201308, end: 201312
  2. AROMASIN [Suspect]
     Indication: BREAST CANCER METASTATIC
     Route: 065
     Dates: start: 201401
  3. GALANTAMINE [Concomitant]

REACTIONS (9)
  - Breast cancer [Unknown]
  - Erythema [Unknown]
  - Decreased appetite [Not Recovered/Not Resolved]
  - Asthenia [Not Recovered/Not Resolved]
  - Depression [Not Recovered/Not Resolved]
  - Apathy [Not Recovered/Not Resolved]
  - Somnolence [Not Recovered/Not Resolved]
  - Fatigue [Not Recovered/Not Resolved]
  - Lethargy [Not Recovered/Not Resolved]
